FAERS Safety Report 19512147 (Version 20)
Quarter: 2023Q1

REPORT INFORMATION
  Report Type: Report from Study
  Country: DE (occurrence: DE)
  Receive Date: 20210709
  Receipt Date: 20230330
  Transmission Date: 20230418
  Serious: Yes (Other)
  Sender: FDA-Public Use
  Company Number: DE-002147023-NVSC2020DE025881

PATIENT
  Sex: Female
  Weight: 65.2 kg

DRUGS (16)
  1. LETROZOLE [Suspect]
     Active Substance: LETROZOLE
     Indication: Breast cancer metastatic
     Dosage: 2.5 MG QD(LAST DOSE RECEIVED ON 23 JUN 2021)
     Route: 048
     Dates: start: 20200110
  2. KISQALI [Suspect]
     Active Substance: RIBOCICLIB
     Indication: Breast cancer metastatic
     Dosage: 600MG,QD (SCHEME 21D INTAKE, 7D PAUSE))
     Route: 048
     Dates: start: 20200110, end: 20200122
  3. KISQALI [Suspect]
     Active Substance: RIBOCICLIB
     Dosage: 600MG,QD (SCHEME 21D INTAKE, 7D PAUSE))
     Route: 048
     Dates: start: 20200204, end: 20200723
  4. KISQALI [Suspect]
     Active Substance: RIBOCICLIB
     Dosage: 600MG,QD (SCHEME 21D INTAKE, 7D PAUSE))
     Route: 048
     Dates: start: 20200820, end: 20200821
  5. KISQALI [Suspect]
     Active Substance: RIBOCICLIB
     Dosage: 400MG,QD (SCHEME 21D INTAKE, 7D PAUSE))
     Route: 048
     Dates: start: 20200901, end: 20200901
  6. KISQALI [Suspect]
     Active Substance: RIBOCICLIB
     Dosage: 200MG,QD (SCHEME 21D INTAKE, 7D PAUSE))
     Route: 048
     Dates: start: 20200919, end: 20201113
  7. KISQALI [Suspect]
     Active Substance: RIBOCICLIB
     Dosage: 400MG,QD (SCHEME 21D INTAKE, 7D PAUSE))
     Route: 048
     Dates: start: 20201114, end: 20210331
  8. KISQALI [Suspect]
     Active Substance: RIBOCICLIB
     Dosage: 200MG,QD (SCHEME 21D INTAKE, 7D PAUSE))
     Route: 048
     Dates: start: 20210401, end: 20210604
  9. KISQALI [Suspect]
     Active Substance: RIBOCICLIB
     Dosage: 400MG,QD (SCHEME 21D INTAKE, 7D PAUSE))
     Route: 048
     Dates: start: 20210605, end: 20210623
  10. KISQALI [Suspect]
     Active Substance: RIBOCICLIB
     Dosage: 400MG,QD (SCHEME 21D INTAKE, 7D PAUSE))
     Route: 048
     Dates: start: 20201114
  11. KISQALI [Suspect]
     Active Substance: RIBOCICLIB
     Indication: Hormone receptor positive HER2 negative breast cancer
     Dosage: 20 GY,QD
     Route: 062
     Dates: start: 20200127, end: 20200127
  12. KISQALI [Suspect]
     Active Substance: RIBOCICLIB
     Dosage: 8.0 GY, QD
     Route: 062
     Dates: start: 20200129, end: 20200131
  13. AMPHO-MORONAL [Concomitant]
     Active Substance: AMPHOTERICIN B
     Indication: Breast cancer
     Dosage: 4 MILLILITER, QD, 1 ML, QID
     Route: 062
     Dates: start: 20200212, end: 20210203
  14. FLUCONAZOLE [Concomitant]
     Active Substance: FLUCONAZOLE
     Indication: Breast cancer
     Dosage: 3 DOSAGE FORM, QD, 1 DF, TID
     Route: 065
     Dates: start: 20200320, end: 20210203
  15. NYSTATIN [Concomitant]
     Active Substance: NYSTATIN
     Indication: Breast cancer
     Dosage: UNK
     Route: 065
     Dates: start: 20200323, end: 20210203
  16. CANESTEN GYN [Concomitant]
     Indication: Breast cancer
     Dosage: 200 MILLIGRAM, QD
     Route: 065
     Dates: start: 20200311, end: 20200316

REACTIONS (24)
  - Anaemia [Not Recovered/Not Resolved]
  - Brain oedema [Recovered/Resolved]
  - Electrocardiogram QT prolonged [Recovered/Resolved]
  - Thrombocytopenia [Recovered/Resolved]
  - Dizziness [Unknown]
  - Leukopenia [Recovering/Resolving]
  - Alanine aminotransferase increased [Recovered/Resolved]
  - Myopathy [Recovered/Resolved]
  - Blood urine present [Unknown]
  - Dysuria [Recovered/Resolved]
  - Blood lactate dehydrogenase increased [Recovered/Resolved]
  - Oedema peripheral [Recovering/Resolving]
  - Gamma-glutamyltransferase increased [Not Recovered/Not Resolved]
  - Protein urine present [Unknown]
  - Mucosal inflammation [Recovered/Resolved]
  - Erythema [Not Recovered/Not Resolved]
  - Blood creatinine increased [Recovering/Resolving]
  - Gastritis [Not Recovered/Not Resolved]
  - Weight decreased [Recovered/Resolved]
  - Nausea [Not Recovered/Not Resolved]
  - Diarrhoea [Not Recovered/Not Resolved]
  - Rash [Recovering/Resolving]
  - Intertrigo [Not Recovered/Not Resolved]
  - Dysphagia [Not Recovered/Not Resolved]

NARRATIVE: CASE EVENT DATE: 20200122
